FAERS Safety Report 5296012-9 (Version None)
Quarter: 2007Q1

REPORT INFORMATION
  Report Type: 
  Country: None (occurrence: None)
  Receive Date: 20070201
  Receipt Date: 20061027
  Transmission Date: 20070707
  Serious: No
  Sender: FDA-Public Use
  Company Number: 2006PV024016

PATIENT
  Age: 67 Year
  Sex: Female

DRUGS (13)
  1. BYETTA [Suspect]
     Indication: DIABETES MELLITUS NON-INSULIN-DEPENDENT
     Dosage: 5 MCG;BID;SC
     Route: 058
     Dates: start: 20061005, end: 20061019
  2. SIMVASTATIN [Suspect]
     Indication: DRUG USE FOR UNKNOWN INDICATION
     Dosage: 40 MG;QD
     Dates: start: 20061005
  3. LANTUS [Concomitant]
  4. HUMULIN N [Concomitant]
  5. METFORMIN HCL [Concomitant]
  6. VERAPAMIL [Concomitant]
  7. SYNTHROID [Concomitant]
  8. PLAVIX [Concomitant]
  9. NIFEDIPINE [Concomitant]
  10. TOPROL-XL [Concomitant]
  11. TRIAMTERENE AND HYDROCHLOROTHIAZIDE [Concomitant]
  12. EVISTA [Concomitant]
  13. FOSAMAX [Concomitant]

REACTIONS (4)
  - CHEST PAIN [None]
  - DYSPNOEA [None]
  - FEELING ABNORMAL [None]
  - THROAT TIGHTNESS [None]
